FAERS Safety Report 21994261 (Version 3)
Quarter: 2023Q1

REPORT INFORMATION
  Report Type: Report from Study
  Country: CN (occurrence: CN)
  Receive Date: 20230215
  Receipt Date: 20230224
  Transmission Date: 20230418
  Serious: Yes (Death, Other)
  Sender: FDA-Public Use
  Company Number: CN-SA-SAC20230214001662

PATIENT
  Age: 2 Year
  Sex: Female

DRUGS (1)
  1. CEREZYME [Suspect]
     Active Substance: IMIGLUCERASE
     Indication: Gaucher^s disease type I
     Dosage: 3 DF, QM
     Route: 042
     Dates: start: 202201, end: 202212

REACTIONS (7)
  - Asphyxia [Fatal]
  - Seizure [Fatal]
  - Gaucher^s disease [Unknown]
  - Condition aggravated [Unknown]
  - Nervous system disorder [Unknown]
  - Dysphagia [Unknown]
  - Pyrexia [Unknown]
